FAERS Safety Report 4576182-8 (Version None)
Quarter: 2005Q1

REPORT INFORMATION
  Report Type: 
  Country: None (occurrence: None)
  Receive Date: 20050201
  Receipt Date: 20050201
  Transmission Date: 20050727
  Serious: Yes (Life-Threatening, Hospitalization)
  Sender: FDA-Public Use
  Company Number: None

PATIENT
  Age: 51 Year
  Sex: Male
  Weight: 95.709 kg

DRUGS (12)
  1. DOXORUBICIN [Suspect]
     Dosage: 50 MG/M2/15MG/M2 IV Q WEEK X 3 WEEKS
     Route: 042
     Dates: start: 20041213
  2. DOXORUBICIN [Suspect]
     Dosage: 50 MG/M2/15MG/M2 IV Q WEEK X 3 WEEKS
     Route: 042
     Dates: start: 20050106
  3. DOXORUBICIN [Suspect]
     Dosage: 50 MG/M2/15MG/M2 IV Q WEEK X 3 WEEKS
     Route: 042
     Dates: start: 20050113
  4. DOXORUBICIN [Suspect]
     Dosage: 50 MG/M2/15MG/M2 IV Q WEEK X 3 WEEKS
     Route: 042
     Dates: start: 20050120
  5. TAXOTERE [Suspect]
     Dosage: 70MG/M2/ 30MG/M2 IV Q WEEK X 3 WEEKS
     Route: 042
     Dates: start: 20041213
  6. TAXOTERE [Suspect]
     Dosage: 70MG/M2/ 30MG/M2 IV Q WEEK X 3 WEEKS
     Route: 042
     Dates: start: 20050106
  7. TAXOTERE [Suspect]
     Dosage: 70MG/M2/ 30MG/M2 IV Q WEEK X 3 WEEKS
     Route: 042
     Dates: start: 20050113
  8. TAXOTERE [Suspect]
     Dosage: 70MG/M2/ 30MG/M2 IV Q WEEK X 3 WEEKS
     Route: 042
     Dates: start: 20050120
  9. METOPROLOL [Concomitant]
  10. SENNOSIDES [Concomitant]
  11. SIMETHICONE [Concomitant]
  12. ACETAMINIPHEN [Concomitant]

REACTIONS (1)
  - ACUTE MYOCARDIAL INFARCTION [None]
